FAERS Safety Report 8518924-2 (Version None)
Quarter: 2012Q3

REPORT INFORMATION
  Report Type: 
  Country: None (occurrence: None)
  Receive Date: 20120718
  Receipt Date: 20120713
  Transmission Date: 20120928
  Serious: Yes (Other)
  Sender: FDA-Public Use
  Company Number: US-GLAXOSMITHKLINE-A0984446A

PATIENT
  Age: 70 Year
  Sex: Male

DRUGS (10)
  1. CALCIUM [Concomitant]
  2. ASCORBIC ACID [Concomitant]
  3. VITAMIN D [Concomitant]
  4. DOXAZOSIN MESYLATE [Concomitant]
  5. SIMVASTATIN [Concomitant]
  6. MULTI-VITAMINS [Concomitant]
  7. ASPIRIN [Concomitant]
  8. FELODIPINE [Concomitant]
  9. AVODART [Suspect]
     Indication: BENIGN PROSTATIC HYPERPLASIA
     Dosage: .5MG PER DAY
     Route: 048
  10. VITAMIN E [Concomitant]

REACTIONS (1)
  - PROSTATE CANCER [None]
